FAERS Safety Report 5692850-9 (Version None)
Quarter: 2008Q2

REPORT INFORMATION
  Report Type: 
  Country: None (occurrence: None)
  Receive Date: 20080401
  Receipt Date: 20080318
  Transmission Date: 20081010
  Serious: Yes (Hospitalization, Other)
  Sender: FDA-Public Use
  Company Number: 2008AL001886

PATIENT
  Sex: Female

DRUGS (1)
  1. BACLOFEN [Suspect]
     Dosage: 10 MG, QD

REACTIONS (7)
  - AGITATION [None]
  - CONFUSIONAL STATE [None]
  - DRUG PRESCRIBING ERROR [None]
  - HALLUCINATION [None]
  - TREMOR [None]
  - UNDERDOSE [None]
  - WITHDRAWAL SYNDROME [None]
